FAERS Safety Report 5429109-0 (Version None)
Quarter: 2007Q3

REPORT INFORMATION
  Report Type: 
  Country: None (occurrence: None)
  Receive Date: 20070829
  Receipt Date: 20070802
  Transmission Date: 20080115
  Serious: Yes (Hospitalization)
  Sender: FDA-Public Use
  Company Number: BR-TYCO HEALTHCARE/MALLINCKRODT-T200700981

PATIENT

DRUGS (1)
  1. OPTIMARK IN GLASS VIALS [Suspect]
     Indication: NUCLEAR MAGNETIC RESONANCE IMAGING BRAIN
     Dosage: 10 ML, SINGLE
     Route: 042
     Dates: start: 20070719, end: 20070719

REACTIONS (3)
  - FACE OEDEMA [None]
  - LARYNGEAL OEDEMA [None]
  - URTICARIA [None]
